FAERS Safety Report 15004753 (Version 1)
Quarter: 2018Q2

REPORT INFORMATION
  Report Type: Spontaneous
  Country: US (occurrence: US)
  Receive Date: 20180521
  Receipt Date: 20180521
  Transmission Date: 20180711
  Serious: Yes (Hospitalization)
  Sender: FDA-Public Use
  Company Number: None

PATIENT
  Age: 71 Year
  Sex: Female
  Weight: 100.1 kg

DRUGS (9)
  1. MEVACOR [Concomitant]
     Active Substance: LOVASTATIN
  2. ELIQUIS [Concomitant]
     Active Substance: APIXABAN
  3. TESSALON [Concomitant]
     Active Substance: BENZONATATE
  4. LASIX [Concomitant]
     Active Substance: FUROSEMIDE
  5. BENTYL [Concomitant]
     Active Substance: DICYCLOMINE HYDROCHLORIDE
  6. AMIODARONE [Concomitant]
     Active Substance: AMIODARONE
  7. COZAAR [Concomitant]
     Active Substance: LOSARTAN POTASSIUM
  8. METFORMIN [Concomitant]
     Active Substance: METFORMIN HYDROCHLORIDE
  9. AMARYL [Suspect]
     Active Substance: GLIMEPIRIDE
     Indication: DIABETES MELLITUS

REACTIONS (4)
  - Fall [None]
  - Upper respiratory tract infection [None]
  - Hypoglycaemia [None]
  - Diarrhoea [None]

NARRATIVE: CASE EVENT DATE: 20180221
